FAERS Safety Report 7672535-X (Version None)
Quarter: 2011Q3

REPORT INFORMATION
  Report Type: 
  Country: None (occurrence: None)
  Receive Date: 20110809
  Receipt Date: 20110728
  Transmission Date: 20111222
  Serious: Yes (Death)
  Sender: FDA-Public Use
  Company Number: GB-UCBSA-032656

PATIENT
  Sex: Female

DRUGS (6)
  1. LANSOPRAZOLE [Concomitant]
     Dates: end: 20110429
  2. WARFARIN [Concomitant]
     Route: 048
     Dates: end: 20110429
  3. DIGOXIN [Concomitant]
     Dates: end: 20110429
  4. TRAMADOL HCL [Concomitant]
     Dates: end: 20110429
  5. METHOTREXATE [Concomitant]
     Dates: end: 20110429
  6. CIMZIA [Suspect]
     Dosage: NO. OF DOSES RECEIVED :ONE
     Route: 058
     Dates: start: 20110421, end: 20110101

REACTIONS (1)
  - MYOCARDIAL INFARCTION [None]
